FAERS Safety Report 7811802-3 (Version None)
Quarter: 2011Q4

REPORT INFORMATION
  Report Type: 
  Country: None (occurrence: None)
  Receive Date: 20111013
  Receipt Date: 20110907
  Transmission Date: 20120403
  Serious: Yes (Death, Hospitalization)
  Sender: FDA-Public Use
  Company Number: PHHY2011CL88464

PATIENT
  Sex: Male

DRUGS (1)
  1. GLEEVEC [Suspect]
     Dosage: 300 MG, UNK
     Route: 048
     Dates: start: 20110222

REACTIONS (8)
  - FEBRILE NEUTROPENIA [None]
  - PNEUMONIA [None]
  - MUCOSAL INFLAMMATION [None]
  - DEATH [None]
  - HYPOALBUMINAEMIA [None]
  - ABDOMINAL DISTENSION [None]
  - ENTEROCOCCUS TEST POSITIVE [None]
  - RESPIRATORY DISTRESS [None]
